FAERS Safety Report 4976211-3 (Version None)
Quarter: 2006Q2

REPORT INFORMATION
  Report Type: 
  Country: None (occurrence: None)
  Receive Date: 20060419
  Receipt Date: 20060407
  Transmission Date: 20061013
  Serious: Yes (Death, Hospitalization, Other)
  Sender: FDA-Public Use
  Company Number: FR-BRISTOL-MYERS SQUIBB COMPANY-13345988

PATIENT
  Age: 70 Year
  Sex: Male

DRUGS (7)
  1. GLUCOPHAGE [Suspect]
     Indication: DIABETES MELLITUS NON-INSULIN-DEPENDENT
     Route: 048
     Dates: end: 20060226
  2. NEXIUM [Concomitant]
  3. DEPAKENE [Concomitant]
  4. AVLOCARDYL [Concomitant]
     Route: 048
  5. ALDALIX [Concomitant]
     Dosage: DOSAGE FORM = 50 MG/20MG
     Route: 048
  6. TARDYFERON [Concomitant]
  7. HEMI-DAONIL [Concomitant]
     Route: 048

REACTIONS (6)
  - ANAEMIA [None]
  - ATRIAL FIBRILLATION [None]
  - INTERSTITIAL LUNG DISEASE [None]
  - LACTIC ACIDOSIS [None]
  - MULTI-ORGAN FAILURE [None]
  - PERICARDITIS [None]
